FAERS Safety Report 4625593-0 (Version None)
Quarter: 2005Q1

REPORT INFORMATION
  Report Type: 
  Country: None (occurrence: None)
  Receive Date: 20050330
  Receipt Date: 20050317
  Transmission Date: 20050727
  Serious: Yes (Hospitalization)
  Sender: FDA-Public Use
  Company Number: HU-2005-003010

PATIENT
  Age: 34 Year
  Sex: Female
  Weight: 90 kg

DRUGS (8)
  1. BETAFERON 250 UG, 500 UG AND COPAXONE (CODE NOT BROKEN)INJECTION, 500 [Suspect]
     Indication: MULTIPLE SCLEROSIS
     Dosage: SEE IMAGE
     Route: 058
     Dates: start: 20050218, end: 20050228
  2. BETAFERON 250 UG, 500 UG AND COPAXONE (CODE NOT BROKEN)INJECTION, 500 [Suspect]
     Indication: MULTIPLE SCLEROSIS
     Dosage: SEE IMAGE
     Route: 058
     Dates: start: 20050110
  3. BETAFERON 250 UG, 500 UG AND COPAXONE (CODE NOT BROKEN)INJECTION, 500 [Suspect]
     Indication: MULTIPLE SCLEROSIS
     Dosage: SEE IMAGE
     Route: 058
     Dates: start: 20050301
  4. TRI-REGOL (LEVONORGESTREL, ETHINYLESTRADIOL) [Suspect]
     Indication: ORAL CONTRACEPTION
     Dates: end: 20050218
  5. ZOLOFT [Concomitant]
  6. MIANSERIN (MIANSERIN) [Concomitant]
  7. XANAX [Concomitant]
  8. ACETAMINOPHEN [Concomitant]

REACTIONS (6)
  - ALANINE AMINOTRANSFERASE INCREASED [None]
  - ASPARTATE AMINOTRANSFERASE INCREASED [None]
  - CHOLELITHIASIS [None]
  - GAMMA-GLUTAMYLTRANSFERASE INCREASED [None]
  - HEPATIC STEATOSIS [None]
  - LIVER DISORDER [None]
